FAERS Safety Report 10911336 (Version 2)
Quarter: 2015Q1

REPORT INFORMATION
  Report Type: Spontaneous
  Country: TR (occurrence: TR)
  Receive Date: 20150313
  Receipt Date: 20150327
  Transmission Date: 20150721
  Serious: Yes (Hospitalization)
  Sender: FDA-Public Use
  Company Number: TR-CIPLA LTD.-2015TR01733

PATIENT

DRUGS (12)
  1. PHENIRAMINE [Concomitant]
     Active Substance: PHENIRAMINE
  2. GRANISETRON [Concomitant]
     Active Substance: GRANISETRON
     Dosage: 3 MG
  3. CETUXIMAB [Suspect]
     Active Substance: CETUXIMAB
     Indication: METASTASES TO BONE
     Dosage: 400 MG/M2
  4. FLUOROURACIL. [Suspect]
     Active Substance: FLUOROURACIL
     Indication: METASTASES TO BONE
  5. RANITIDINE [Concomitant]
     Active Substance: RANITIDINE\RANITIDINE HYDROCHLORIDE
  6. BEVACIZUMAB [Suspect]
     Active Substance: BEVACIZUMAB
     Indication: METASTASES TO BONE
  7. DEXAMETHASONE. [Concomitant]
     Active Substance: DEXAMETHASONE
     Dosage: 8 MG,
  8. IRINOTECAN [Suspect]
     Active Substance: IRINOTECAN
     Indication: METASTASES TO LIVER
  9. CETUXIMAB [Suspect]
     Active Substance: CETUXIMAB
     Indication: METASTASES TO LIVER
     Dosage: MAINTENANCE DOSE OF 250 MG/M2
  10. OXALIPLATIN. [Suspect]
     Active Substance: OXALIPLATIN
     Indication: METASTASES TO BONE
  11. METOCLOPRAMIDE. [Concomitant]
     Active Substance: METOCLOPRAMIDE
  12. IRINOTECAN [Suspect]
     Active Substance: IRINOTECAN
     Indication: METASTASES TO BONE
     Dosage: 125 MG/M2, UNK

REACTIONS (8)
  - Malignant neoplasm progression [Recovered/Resolved]
  - Hypersensitivity [None]
  - Haematuria [None]
  - Rash pustular [Unknown]
  - Neutropenia [None]
  - Tumour lysis syndrome [None]
  - Metastases to liver [Recovered/Resolved]
  - Renal failure [None]
